FAERS Safety Report 9423227 (Version 1)
Quarter: 2013Q3

REPORT INFORMATION
  Report Type: Spontaneous
  Country: US (occurrence: US)
  Receive Date: 20130726
  Receipt Date: 20130726
  Transmission Date: 20140515
  Serious: No
  Sender: FDA-Public Use
  Company Number: US-BAYER-2013-087299

PATIENT
  Age: 38 Year
  Sex: Female

DRUGS (2)
  1. MIRENA [Suspect]
     Indication: UTERINE LEIOMYOMA
     Dosage: 20 MCG/24HR, CONT
     Route: 015
     Dates: start: 2007
  2. MIRENA [Suspect]
     Indication: ENDOMETRIOSIS

REACTIONS (6)
  - Device misuse [None]
  - Abdominal distension [None]
  - Pelvic pain [None]
  - Fluid retention [None]
  - Pain [None]
  - Off label use [None]
